FAERS Safety Report 5197266-X (Version None)
Quarter: 2007Q1

REPORT INFORMATION
  Report Type: 
  Country: None (occurrence: None)
  Receive Date: 20070103
  Receipt Date: 20061227
  Transmission Date: 20070707
  Serious: Yes (Life-Threatening)
  Sender: FDA-Public Use
  Company Number: DE-BAXTER-2006BH015087

PATIENT
  Age: 45 Year
  Sex: Female

DRUGS (1)
  1. KIOVIG [Suspect]
     Indication: HYPOGAMMAGLOBULINAEMIA
     Route: 042
     Dates: start: 20061213, end: 20061213

REACTIONS (1)
  - ANAPHYLACTIC REACTION [None]
